FAERS Safety Report 7298158-2 (Version None)
Quarter: 2011Q1

REPORT INFORMATION
  Report Type: 
  Country: None (occurrence: None)
  Receive Date: 20110214
  Receipt Date: 20110214
  Transmission Date: 20110831
  Serious: Yes (Hospitalization)
  Sender: FDA-Public Use
  Company Number: None

PATIENT
  Age: 65 Year
  Sex: Male
  Weight: 64.8644 kg

DRUGS (3)
  1. CISPLATIN [Suspect]
     Indication: OESOPHAGEAL ADENOCARCINOMA
     Dosage: 80MG/M2 Q28D IV
     Route: 042
     Dates: start: 20101206, end: 20110103
  2. PANITUMUMAB [Concomitant]
  3. FLUOROURACIL [Suspect]
     Indication: OESOPHAGEAL ADENOCARCINOMA
     Dosage: 1000MG/M2/DAY Q28D OVER 96 HR IV
     Route: 042
     Dates: start: 20101206, end: 20110107

REACTIONS (4)
  - DYSPNOEA [None]
  - FATIGUE [None]
  - HAEMOGLOBIN DECREASED [None]
  - DUODENAL ULCER HAEMORRHAGE [None]
